FAERS Safety Report 6653717-2 (Version None)
Quarter: 2010Q1

REPORT INFORMATION
  Report Type: 
  Country: None (occurrence: None)
  Receive Date: 20100326
  Receipt Date: 20100315
  Transmission Date: 20100710
  Serious: No
  Sender: FDA-Public Use
  Company Number: US-B.I. PHARMACEUTICALS,INC./RIDGEFIELD-2010-BP-02976BP

PATIENT
  Age: 80 Year
  Sex: Male

DRUGS (9)
  1. SPIRIVA [Suspect]
     Indication: CHRONIC OBSTRUCTIVE PULMONARY DISEASE
     Dosage: 18 MCG
     Route: 055
     Dates: start: 20100310
  2. SPIRIVA [Suspect]
     Indication: BRONCHITIS
  3. SPIRIVA [Suspect]
     Indication: EMPHYSEMA
  4. ADVAIR DISKUS 100/50 [Concomitant]
     Indication: CHRONIC OBSTRUCTIVE PULMONARY DISEASE
  5. VITAMIN E [Concomitant]
     Indication: VITAMIN SUPPLEMENTATION
  6. FINASTERIDE [Concomitant]
     Indication: BENIGN PROSTATIC HYPERPLASIA
  7. DOXYSOINE [Concomitant]
     Indication: BENIGN PROSTATIC HYPERPLASIA
  8. ALBUTEROL [Concomitant]
     Indication: BRONCHITIS
  9. ALBUTEROL [Concomitant]
     Indication: EMPHYSEMA

REACTIONS (2)
  - DYSPNOEA [None]
  - NOCTURNAL DYSPNOEA [None]
